FAERS Safety Report 9974482 (Version 1)
Quarter: 2014Q1

REPORT INFORMATION
  Report Type: Report from Study
  Country: US (occurrence: US)
  Receive Date: 20140306
  Receipt Date: 20140306
  Transmission Date: 20141002
  Serious: No
  Sender: FDA-Public Use
  Company Number: US-ABBVIE-13P-163-1159226-00

PATIENT
  Age: 50 Year
  Sex: Female
  Weight: 97.61 kg

DRUGS (1)
  1. HUMIRA [Suspect]
     Indication: PSORIASIS
     Dates: start: 20130919, end: 20130919

REACTIONS (4)
  - Incorrect dose administered [Unknown]
  - Drug dose omission [Unknown]
  - Pain in extremity [Recovered/Resolved]
  - Psoriasis [Unknown]
